FAERS Safety Report 4332994-7 (Version None)
Quarter: 2004Q1

REPORT INFORMATION
  Report Type: 
  Country: None (occurrence: None)
  Receive Date: 20040330
  Receipt Date: 20040317
  Transmission Date: 20041129
  Serious: Yes (Hospitalization)
  Sender: FDA-Public Use
  Company Number: 03P-056-0239611-00

PATIENT
  Age: 46 Year
  Sex: Female

DRUGS (5)
  1. DEPAKOTE [Suspect]
     Indication: OVERDOSE
     Dosage: 500 MG, PER ORAL
     Route: 048
     Dates: start: 20030901, end: 20030901
  2. MIRTAZAPINE [Suspect]
     Indication: OVERDOSE
     Dosage: 15 MG, PER ORAL
     Route: 048
     Dates: start: 20030901, end: 20030901
  3. DIAZEPAM [Suspect]
     Indication: OVERDOSE
     Dosage: PER ORAL
     Route: 048
     Dates: start: 20030901, end: 20030901
  4. ALPRAZOLAM [Suspect]
     Indication: OVERDOSE
     Dosage: PER ORAL
     Route: 048
     Dates: start: 20030901, end: 20030901
  5. ZOLPIDEM [Suspect]
     Indication: OVERDOSE
     Dosage: PER ORAL
     Route: 048
     Dates: start: 20030901, end: 20030901

REACTIONS (9)
  - ACUTE RESPIRATORY DISTRESS SYNDROME [None]
  - BACTERIA SPUTUM IDENTIFIED [None]
  - COMA [None]
  - ENTEROBACTER INFECTION [None]
  - INTENTIONAL OVERDOSE [None]
  - MYELODYSPLASTIC SYNDROME [None]
  - NEUTROPENIA [None]
  - PYREXIA [None]
  - THROMBOCYTOPENIA [None]
